FAERS Safety Report 11106996 (Version 3)
Quarter: 2015Q2

REPORT INFORMATION
  Report Type: Report from Study
  Country: US (occurrence: US)
  Receive Date: 20150512
  Receipt Date: 20150527
  Transmission Date: 20150821
  Serious: Yes (Hospitalization, Other)
  Sender: FDA-Public Use
  Company Number: US-GILEAD-2015-0152938

PATIENT
  Age: 73 Year
  Sex: Female

DRUGS (3)
  1. VELETRI [Concomitant]
     Active Substance: EPOPROSTENOL
  2. AMBRISENTAN [Suspect]
     Active Substance: AMBRISENTAN
     Indication: PULMONARY ARTERIAL HYPERTENSION
     Dosage: 10 MG, QD
     Route: 065
     Dates: start: 20140228
  3. REVATIO [Concomitant]
     Active Substance: SILDENAFIL CITRATE

REACTIONS (6)
  - Haemoglobin decreased [Recovered/Resolved]
  - Pain in jaw [Recovered/Resolved]
  - Gastrointestinal haemorrhage [Unknown]
  - Hypotension [Recovered/Resolved]
  - Gastric disorder [Recovered/Resolved]
  - Rash [Recovered/Resolved]
